FAERS Safety Report 19613585 (Version 3)
Quarter: 2021Q3

REPORT INFORMATION
  Report Type: Spontaneous
  Country: CA (occurrence: CA)
  Receive Date: 20210727
  Receipt Date: 20210908
  Transmission Date: 20211014
  Serious: Yes (Other)
  Sender: FDA-Public Use
  Company Number: CA-COLGATE PALMOLIVE COMPANY-20210701617

PATIENT
  Sex: Female
  Weight: 97 kg

DRUGS (30)
  1. ACTEMRA [Suspect]
     Active Substance: TOCILIZUMAB
     Dosage: 725 MILLIGRAM
     Route: 042
  2. PANTOLOC [PANTOPRAZOLE SODIUM SESQUIHYDRATE] [Suspect]
     Active Substance: PANTOPRAZOLE SODIUM
     Indication: PRODUCT USED FOR UNKNOWN INDICATION
     Route: 065
  3. CHLORHEXIDINE UNSPECIFIED [Suspect]
     Active Substance: CHLORHEXIDINE
     Indication: PRODUCT USED FOR UNKNOWN INDICATION
     Route: 065
  4. ACTEMRA [Suspect]
     Active Substance: TOCILIZUMAB
     Dosage: 752.8 MILLIGRAM
     Route: 042
  5. CHLORAPREP [Suspect]
     Active Substance: CHLORHEXIDINE GLUCONATE\ISOPROPYL ALCOHOL
     Indication: RHEUMATOID ARTHRITIS
     Route: 061
  6. IBUPROFEN. [Concomitant]
     Active Substance: IBUPROFEN
  7. OXYCODONE TEREPHTHALATE [Suspect]
     Active Substance: OXYCODONE TEREPHTHALATE
     Indication: PRODUCT USED FOR UNKNOWN INDICATION
     Route: 065
  8. ACETAMINOPHEN. [Suspect]
     Active Substance: ACETAMINOPHEN
     Indication: PRODUCT USED FOR UNKNOWN INDICATION
     Route: 065
  9. ORENCIA [Suspect]
     Active Substance: ABATACEPT
     Indication: RHEUMATOID ARTHRITIS
     Dosage: 125 MILLIGRAM
     Route: 042
  10. ORENCIA [Suspect]
     Active Substance: ABATACEPT
     Dosage: 17.85 MILLIGRAM
     Route: 058
  11. CIMZIA [Suspect]
     Active Substance: CERTOLIZUMAB PEGOL
     Indication: PRODUCT USED FOR UNKNOWN INDICATION
     Route: 058
  12. TYLENOL [Concomitant]
     Active Substance: ACETAMINOPHEN
  13. METHOTREXATE. [Suspect]
     Active Substance: METHOTREXATE
     Indication: RHEUMATOID ARTHRITIS
     Route: 065
  14. ACTEMRA [Suspect]
     Active Substance: TOCILIZUMAB
     Dosage: 728 MILLIGRAM
     Route: 042
  15. LEFLUNOMIDE. [Suspect]
     Active Substance: LEFLUNOMIDE
     Indication: RHEUMATOID ARTHRITIS
     Route: 065
  16. ENBREL [Suspect]
     Active Substance: ETANERCEPT
     Indication: RHEUMATOID ARTHRITIS
     Route: 058
  17. SULFAMETHOXAZOLE;TRIMETHOPRIM [Suspect]
     Active Substance: SULFAMETHOXAZOLE\TRIMETHOPRIM
     Indication: PRODUCT USED FOR UNKNOWN INDICATION
     Route: 065
  18. ZOPICLONE [Concomitant]
     Active Substance: ZOPICLONE
  19. TYLENOL WITH CODEINE [Concomitant]
     Active Substance: ACETAMINOPHEN\CODEINE PHOSPHATE
  20. OXYCODONE [Suspect]
     Active Substance: OXYCODONE
     Indication: PRODUCT USED FOR UNKNOWN INDICATION
     Route: 065
  21. ACTEMRA [Suspect]
     Active Substance: TOCILIZUMAB
     Indication: RHEUMATOID ARTHRITIS
     Dosage: 752.8 MILLIGRAM
     Route: 042
  22. PREDNISONE. [Concomitant]
     Active Substance: PREDNISONE
  23. PERIOGARD [Suspect]
     Active Substance: CHLORHEXIDINE GLUCONATE
     Indication: PRODUCT USED FOR UNKNOWN INDICATION
     Route: 002
  24. ACTEMRA [Suspect]
     Active Substance: TOCILIZUMAB
     Dosage: 728 MILLIGRAM
     Route: 042
  25. CETIRIZINE [Concomitant]
     Active Substance: CETIRIZINE HYDROCHLORIDE
  26. ARAVA [Concomitant]
     Active Substance: LEFLUNOMIDE
  27. HYDROXYCHLOROQUINE SULFATE. [Suspect]
     Active Substance: HYDROXYCHLOROQUINE SULFATE
     Indication: PRODUCT USED FOR UNKNOWN INDICATION
     Route: 065
  28. SULFAMETHOXAZOLE [Suspect]
     Active Substance: SULFAMETHOXAZOLE
     Indication: PRODUCT USED FOR UNKNOWN INDICATION
     Route: 065
  29. SIMPONI [Suspect]
     Active Substance: GOLIMUMAB
     Indication: PRODUCT USED FOR UNKNOWN INDICATION
     Dosage: SOLUTION SUBCUTANEOUS
     Route: 058
  30. DESOGESTREL;ETHINYLESTRADIOL [Concomitant]
     Active Substance: DESOGESTREL\ETHINYL ESTRADIOL

REACTIONS (32)
  - Stomatitis [Unknown]
  - Hypersensitivity [Unknown]
  - Insomnia [Unknown]
  - Pain [Unknown]
  - Nasopharyngitis [Unknown]
  - Ill-defined disorder [Unknown]
  - Sinusitis [Unknown]
  - Pruritus [Unknown]
  - Off label use [Unknown]
  - Impaired healing [Unknown]
  - Blister [Unknown]
  - Fatigue [Unknown]
  - Pyrexia [Unknown]
  - Joint swelling [Unknown]
  - Contusion [Unknown]
  - Rash [Unknown]
  - Lower respiratory tract infection [Unknown]
  - Swelling [Unknown]
  - Therapeutic product effect decreased [Unknown]
  - Muscle injury [Unknown]
  - Gastrointestinal disorder [Unknown]
  - Contraindicated product administered [Unknown]
  - Infection [Unknown]
  - Peripheral swelling [Unknown]
  - Irritable bowel syndrome [Unknown]
  - Sleep disorder due to general medical condition, insomnia type [Unknown]
  - Folliculitis [Unknown]
  - Weight increased [Unknown]
  - Confusional state [Unknown]
  - Dyspnoea [Unknown]
  - Drug ineffective [Unknown]
  - Arthralgia [Unknown]
